FAERS Safety Report 9000392 (Version 2)
Quarter: 2013Q1

REPORT INFORMATION
  Report Type: Spontaneous
  Country: US (occurrence: None)
  Receive Date: 20121221
  Receipt Date: 20121228
  Transmission Date: 20140127
  Serious: Yes (Other)
  Sender: FDA-Public Use
  Company Number: DKLU1087303

PATIENT
  Age: 43 Year
  Sex: Female

DRUGS (3)
  1. SABRIL [Suspect]
     Indication: EPILEPSY
     Route: 048
     Dates: start: 20101117
  2. SABRIL [Suspect]
     Indication: COMPLEX PARTIAL SEIZURES
     Route: 048
     Dates: start: 20101117
  3. SABRIL [Suspect]
     Indication: EPILEPSY
     Route: 048
     Dates: start: 20101117

REACTIONS (2)
  - Blindness [None]
  - Convulsion [None]
